FAERS Safety Report 6810765-7 (Version None)
Quarter: 2010Q2

REPORT INFORMATION
  Report Type: 
  Country: None (occurrence: None)
  Receive Date: 20100630
  Receipt Date: 20070524
  Transmission Date: 20101027
  Serious: No
  Sender: FDA-Public Use
  Company Number: US-PFIZER INC-2007044791

PATIENT
  Sex: Female
  Weight: 58.97 kg

DRUGS (3)
  1. NICOTROL [Suspect]
     Indication: SMOKING CESSATION THERAPY
     Route: 055
     Dates: start: 20070213, end: 20070523
  2. ANTIDEPRESSANTS [Concomitant]
  3. NEXIUM [Concomitant]

REACTIONS (1)
  - COUGH [None]
